FAERS Safety Report 18728540 (Version 2)
Quarter: 2022Q2

REPORT INFORMATION
  Report Type: Spontaneous
  Country: US (occurrence: US)
  Receive Date: 20210112
  Receipt Date: 20220408
  Transmission Date: 20220720
  Serious: Yes (Life-Threatening, Hospitalization, Other)
  Sender: FDA-Public Use
  Company Number: US-LUPIN PHARMACEUTICALS INC.-2020-11578

PATIENT
  Age: 47 Year
  Sex: Male

DRUGS (14)
  1. VORICONAZOLE [Suspect]
     Active Substance: VORICONAZOLE
     Indication: Antifungal treatment
     Dosage: 240 MG, BID
     Route: 042
     Dates: start: 2020, end: 2020
  2. ALBUTEROL SULFATE [Suspect]
     Active Substance: ALBUTEROL SULFATE
     Indication: Hyperkalaemia
     Dosage: UNK
     Dates: start: 2020
  3. SODIUM BICARBONATE [Suspect]
     Active Substance: SODIUM BICARBONATE
     Indication: Hyperkalaemia
     Dosage: 50 MILLIEQUIVALENT
     Route: 042
     Dates: start: 2020
  4. FUROSEMIDE [Suspect]
     Active Substance: FUROSEMIDE
     Indication: Hyperkalaemia
     Dosage: 80 MG
     Route: 042
     Dates: start: 2020
  5. SODIUM POLYSTYRENE SULFONATE [Suspect]
     Active Substance: SODIUM POLYSTYRENE SULFONATE
     Indication: Hyperkalaemia
     Dosage: 60 GRAM
     Route: 054
     Dates: start: 2020
  6. INSULIN NOS [Suspect]
     Active Substance: INSULIN NOS
     Indication: Hyperkalaemia
     Dosage: UNK (7 UNITS WITH 50ML OF 50% GLUCOSE)
     Route: 042
     Dates: start: 2020
  7. DEXTROSE [Suspect]
     Active Substance: DEXTROSE
     Indication: Hyperkalaemia
     Dosage: 50 MILLILITER
     Route: 065
     Dates: start: 2020
  8. EPINEPHRINE [Concomitant]
     Active Substance: EPINEPHRINE
     Indication: Septic shock
     Dosage: UNK (0.3 MICROGRAM PER KILOGRAM PER MINUTE)
     Route: 042
     Dates: start: 2022
  9. NOREPINEPHRINE [Concomitant]
     Active Substance: NOREPINEPHRINE
     Indication: Septic shock
     Dosage: UNK (12 MICROGRAM PER KILOGRAM PER MINUTE)
     Route: 042
     Dates: start: 2020
  10. PIPERACILLIN SODIUM\TAZOBACTAM SODIUM [Concomitant]
     Active Substance: PIPERACILLIN SODIUM\TAZOBACTAM SODIUM
     Indication: Symptomatic treatment
     Dosage: 4.5 GRAM, QID
     Dates: start: 2020
  11. AZITHROMYCIN [Concomitant]
     Active Substance: AZITHROMYCIN
     Indication: Symptomatic treatment
     Dosage: 500 MG, QD
     Route: 042
     Dates: start: 2020
  12. VANCOMYCIN [Concomitant]
     Active Substance: VANCOMYCIN
     Indication: Symptomatic treatment
     Dosage: 1 GRAM, BID
     Route: 042
     Dates: start: 2020
  13. OSELTAMIVIR [Concomitant]
     Active Substance: OSELTAMIVIR
     Indication: Symptomatic treatment
     Dosage: 75 MG, BID
     Route: 065
     Dates: start: 2020
  14. ROCURONIUM [Concomitant]
     Active Substance: ROCURONIUM BROMIDE
     Indication: Product used for unknown indication
     Dosage: UNK (8 MICROGRAM PER KILOGRAM PER MINUTE)
     Route: 042
     Dates: start: 2020

REACTIONS (6)
  - Hyperkalaemia [Recovered/Resolved]
  - Adrenal insufficiency [Recovered/Resolved]
  - Hyponatraemia [Unknown]
  - Drug ineffective for unapproved indication [Unknown]
  - Treatment failure [Unknown]
  - Off label use [Unknown]
